FAERS Safety Report 8599022-9 (Version None)
Quarter: 2012Q3

REPORT INFORMATION
  Report Type: 
  Country: None (occurrence: None)
  Receive Date: 20120803
  Receipt Date: 20120727
  Transmission Date: 20120928
  Serious: Yes (Hospitalization)
  Sender: FDA-Public Use
  Company Number: KV201200148

PATIENT
  Sex: Female

DRUGS (1)
  1. MAKENA [Suspect]
     Indication: PREMATURE DELIVERY
     Dosage: 250 MG, ONCE WEEKLY, INTRAMUSCULAR
     Route: 030

REACTIONS (3)
  - MATERNAL EXPOSURE DURING PREGNANCY [None]
  - CERVIX HAEMORRHAGE UTERINE [None]
  - OFF LABEL USE [None]
